FAERS Safety Report 22586072 (Version 1)
Quarter: 2023Q2

REPORT INFORMATION
  Report Type: Spontaneous
  Country: CN (occurrence: CN)
  Receive Date: 20230610
  Receipt Date: 20230610
  Transmission Date: 20230721
  Serious: Yes (Life-Threatening, Other)
  Sender: FDA-Public Use
  Company Number: CN-SUN PHARMACEUTICAL INDUSTRIES LTD-2023R1-394066

PATIENT
  Age: 68 Year
  Sex: Female

DRUGS (4)
  1. OMEPRAZOLE [Suspect]
     Active Substance: OMEPRAZOLE
     Indication: Torsade de pointes
     Dosage: 40 MILLIGRAM IN 0.9% NS 100 ML
     Route: 042
  2. AMIODARONE [Suspect]
     Active Substance: AMIODARONE
     Indication: Torsade de pointes
     Dosage: 0.15 GRAM
     Route: 042
  3. AMIODARONE [Suspect]
     Active Substance: AMIODARONE
     Dosage: CONTINUOUS INFUSION AT 1 MG/MIN
     Route: 042
  4. MAGNESIUM\POTASSIUM [Suspect]
     Active Substance: MAGNESIUM\POTASSIUM
     Indication: Torsade de pointes
     Dosage: 500 ML 5% GS OF 25% MAGNESIUM SULFATE 10 ML AND 10% MURIATE 15 ML
     Route: 042

REACTIONS (2)
  - Condition aggravated [Unknown]
  - Loss of consciousness [Recovered/Resolved]
